FAERS Safety Report 7075133-4 (Version None)
Quarter: 2010Q4

REPORT INFORMATION
  Report Type: 
  Country: None (occurrence: None)
  Receive Date: 20101029
  Receipt Date: 20100603
  Transmission Date: 20110411
  Serious: No
  Sender: FDA-Public Use
  Company Number: US-WYE-H15000810

PATIENT
  Age: 39 Year
  Sex: Female
  Weight: 63.56 kg

DRUGS (4)
  1. ALAVERT [Suspect]
     Indication: RHINORRHOEA
     Route: 048
     Dates: start: 20100401, end: 20100427
  2. ALAVERT [Suspect]
     Indication: EYE PRURITUS
     Dosage: 2 TABLETS YESTERDAY
     Route: 048
     Dates: start: 20100428
  3. ALAVERT [Suspect]
     Indication: THROAT IRRITATION
  4. VIOKASE 16 [Concomitant]

REACTIONS (3)
  - DRUG INEFFECTIVE [None]
  - OVERDOSE [None]
  - SOMNOLENCE [None]
